FAERS Safety Report 11113107 (Version 1)
Quarter: 2015Q2

REPORT INFORMATION
  Report Type: Spontaneous
  Country: FR (occurrence: FR)
  Receive Date: 20150514
  Receipt Date: 20150514
  Transmission Date: 20150821
  Serious: Yes (Hospitalization)
  Sender: FDA-Public Use
  Company Number: FR-JNJFOC-20150501499

PATIENT
  Age: 53 Year
  Sex: Male

DRUGS (15)
  1. CRESTOR [Concomitant]
     Active Substance: ROSUVASTATIN CALCIUM
     Route: 048
     Dates: start: 20150402
  2. NATISPRAY [Concomitant]
     Active Substance: NITROGLYCERIN
     Dosage: ON DEMAND
     Route: 065
  3. TRUVADA [Suspect]
     Active Substance: EMTRICITABINE\TENOFOVIR DISOPROXIL FUMARATE
     Indication: HIV INFECTION
     Dosage: 200 MG/245 MG
     Route: 048
     Dates: start: 20150403
  4. METHYLPREDNISOLONE. [Concomitant]
     Active Substance: METHYLPREDNISOLONE
     Dosage: MYLAN
     Route: 065
     Dates: start: 20150328
  5. CEFTRIAXONE. [Suspect]
     Active Substance: CEFTRIAXONE
     Indication: HIV INFECTION
     Route: 042
     Dates: start: 20150326, end: 20150413
  6. BACTRIM [Suspect]
     Active Substance: SULFAMETHOXAZOLE\TRIMETHOPRIM
     Indication: HIV INFECTION
     Dosage: 200 MG/245 MG
     Route: 065
     Dates: start: 20150323, end: 20150413
  7. BISOPROLOL [Concomitant]
     Active Substance: BISOPROLOL
     Route: 048
     Dates: start: 2014
  8. CEFOTAXIME [Concomitant]
     Active Substance: CEFOTAXIME\CEFOTAXIME SODIUM
     Dosage: ON DEMAND
     Route: 065
     Dates: start: 20150330
  9. NORVIR [Suspect]
     Active Substance: RITONAVIR
     Indication: HIV INFECTION
     Route: 048
     Dates: start: 20150402
  10. ROVALCYTE [Suspect]
     Active Substance: VALGANCICLOVIR HYDROCHLORIDE
     Indication: HIV INFECTION
     Dosage: 450 MG/ ORAL TABLET
     Route: 048
     Dates: start: 20150415, end: 20150420
  11. METHYLPREDNISOLONE. [Concomitant]
     Active Substance: METHYLPREDNISOLONE
     Route: 065
     Dates: start: 20150325
  12. KARDEGIC [Concomitant]
     Active Substance: ASPIRIN LYSINE
     Dosage: 1 SACHET-DOSE
     Route: 048
     Dates: start: 2008
  13. PREZISTA [Suspect]
     Active Substance: DARUNAVIR ETHANOLATE
     Indication: HIV INFECTION
     Route: 048
     Dates: start: 20150402
  14. BACTRIM [Suspect]
     Active Substance: SULFAMETHOXAZOLE\TRIMETHOPRIM
     Indication: HIV INFECTION
     Dosage: 200 MG/245 MG
     Route: 065
     Dates: start: 20150402
  15. TRIATEC [Concomitant]
     Active Substance: RAMIPRIL
     Route: 048
     Dates: start: 2009

REACTIONS (5)
  - Immune reconstitution inflammatory syndrome [Recovered/Resolved]
  - Cytomegalovirus viraemia [Recovering/Resolving]
  - Haemoglobin decreased [Not Recovered/Not Resolved]
  - Platelet count decreased [Not Recovered/Not Resolved]
  - Neutropenia [Recovered/Resolved]

NARRATIVE: CASE EVENT DATE: 20150415
